FAERS Safety Report 5786117-8 (Version None)
Quarter: 2008Q2

REPORT INFORMATION
  Report Type: 
  Country: None (occurrence: None)
  Receive Date: 20080619
  Receipt Date: 20080612
  Transmission Date: 20081010
  Serious: Yes (Death)
  Sender: FDA-Public Use
  Company Number: 2008-02157

PATIENT
  Age: 79 Year
  Sex: Female

DRUGS (8)
  1. VELCADE [Suspect]
     Indication: MULTIPLE MYELOMA
     Dosage: 2.1 MG, INTRAVENOUS
     Route: 042
     Dates: start: 20080512, end: 20080512
  2. ONDANSETRON HCL [Suspect]
     Indication: MULTIPLE MYELOMA
     Dosage: 8 MG, INTRAVENOUS
     Route: 042
     Dates: start: 20080512, end: 20080512
  3. OSTRAM (COLECALCIFEROL, CALCIUM PHOSPHATE) [Concomitant]
  4. KARDEGIC (ACETYLSALICYLATE LYSINE) [Concomitant]
  5. BISOPROLOL FUMARATE [Concomitant]
  6. COZAAR [Concomitant]
  7. FOSAMAX [Concomitant]
  8. ACETAMINOPHEN [Concomitant]

REACTIONS (7)
  - ANURIA [None]
  - APLASIA [None]
  - BRADYCARDIA [None]
  - HYPOTENSION [None]
  - HYPOXIA [None]
  - SEPSIS [None]
  - SHOCK [None]
